FAERS Safety Report 13903448 (Version 1)
Quarter: 2017Q3

REPORT INFORMATION
  Report Type: Report from Study
  Country: US (occurrence: US)
  Receive Date: 20170824
  Receipt Date: 20170824
  Transmission Date: 20171127
  Serious: Yes (Other)
  Sender: FDA-Public Use
  Company Number: US-GILEAD-2017-0280474

PATIENT
  Age: 67 Year
  Sex: Male

DRUGS (2)
  1. IDELALISIB [Suspect]
     Active Substance: IDELALISIB
     Dosage: 150 MG, BID
     Route: 048
     Dates: start: 20160910, end: 201611
  2. IDELALISIB [Suspect]
     Active Substance: IDELALISIB
     Indication: B-CELL LYMPHOMA
     Dosage: 100 MG, BID
     Route: 048
     Dates: start: 20161104, end: 201705

REACTIONS (4)
  - Coeliac disease [Unknown]
  - Weight decreased [Unknown]
  - Nausea [Unknown]
  - Diarrhoea [Unknown]
